FAERS Safety Report 6762605-2 (Version None)
Quarter: 2010Q2

REPORT INFORMATION
  Report Type: 
  Country: None (occurrence: None)
  Receive Date: 20100609
  Receipt Date: 20100607
  Transmission Date: 20101027
  Serious: Yes (Other)
  Sender: FDA-Public Use
  Company Number: FR-MERCK-1002FRA00115

PATIENT
  Age: 55 Year
  Sex: Male

DRUGS (1)
  1. JANUMET [Suspect]
     Route: 048
     Dates: start: 20100101

REACTIONS (1)
  - LIPASE INCREASED [None]
